FAERS Safety Report 9373337 (Version 1)
Quarter: 2013Q2

REPORT INFORMATION
  Report Type: Spontaneous
  Country: FR (occurrence: FR)
  Receive Date: 20130627
  Receipt Date: 20130627
  Transmission Date: 20140414
  Serious: Yes (Life-Threatening, Hospitalization)
  Sender: FDA-Public Use
  Company Number: FR-GLAXOSMITHKLINE-B0901430A

PATIENT
  Age: 59 Year
  Sex: Male

DRUGS (5)
  1. NIMBEX [Suspect]
     Indication: GENERAL ANAESTHESIA
     Dosage: 20MG PER DAY
     Route: 042
     Dates: start: 20130322, end: 20130322
  2. CEFUROXIM [Suspect]
     Indication: ANTIBIOTIC PROPHYLAXIS
     Dosage: 1.5G PER DAY
     Route: 042
     Dates: start: 20130322, end: 20130322
  3. REMIFENTANIL [Suspect]
     Indication: GENERAL ANAESTHESIA
     Dosage: .1UKM PER DAY
     Route: 042
     Dates: start: 20130322, end: 20130322
  4. SUXAMETHONIUM [Suspect]
     Indication: GENERAL ANAESTHESIA
     Dosage: 100MG PER DAY
     Route: 042
     Dates: start: 20130322, end: 20130322
  5. DIPRIVAN [Suspect]
     Indication: GENERAL ANAESTHESIA
     Dosage: 1.5MCG PER DAY
     Route: 042
     Dates: start: 20130322, end: 20130322

REACTIONS (4)
  - Shock [Recovered/Resolved]
  - Blood pressure decreased [Unknown]
  - Carotid pulse decreased [Unknown]
  - Sensorimotor disorder [Unknown]
